FAERS Safety Report 19204482 (Version 1)
Quarter: 2021Q2

REPORT INFORMATION
  Report Type: Spontaneous
  Country: IT (occurrence: IT)
  Receive Date: 20210503
  Receipt Date: 20210503
  Transmission Date: 20210717
  Serious: Yes (Other)
  Sender: FDA-Public Use
  Company Number: IT-LUPIN PHARMACEUTICALS INC.-2021-06047

PATIENT
  Age: 34 Year
  Sex: Male

DRUGS (5)
  1. STANOZOLOL [Suspect]
     Active Substance: STANOZOLOL
     Indication: PHYSICAL DISABILITY
     Dosage: UNK (HE TOOK REPEATED IV INJECTIONS (MISUSE))
     Route: 042
  2. SODIUM OXYBATE. [Interacting]
     Active Substance: SODIUM OXYBATE
     Indication: PRODUCT USED FOR UNKNOWN INDICATION
     Dosage: UNK
     Route: 048
  3. BETAMETHASONE. [Suspect]
     Active Substance: BETAMETHASONE
     Indication: PSORIASIS
     Dosage: UNK IN EXCESS AMOUNTS
     Route: 061
  4. COBICISTAT;ELVITEGRAVIR;EMTRICITABINE;TENOFOVIR ALAFENAMIDE [Interacting]
     Active Substance: COBICISTAT\ELVITEGRAVIR\EMTRICITABINE\TENOFOVIR ALAFENAMIDE FUMARATE
     Indication: HIV INFECTION
     Dosage: UNK
     Route: 065
  5. TESTOSTERONE. [Suspect]
     Active Substance: TESTOSTERONE
     Indication: PHYSICAL DISABILITY
     Dosage: UNK HE TOOK REPEATED IV INJECTIONS (MISUSE)
     Route: 042

REACTIONS (4)
  - Hypothalamic pituitary adrenal axis suppression [Recovering/Resolving]
  - Intentional product misuse [Unknown]
  - Cushing^s syndrome [Recovering/Resolving]
  - Drug interaction [Unknown]
